FAERS Safety Report 8731624 (Version 2)
Quarter: 2012Q4

REPORT INFORMATION
  Report Type: Report from Study
  Country: JP (occurrence: JP)
  Receive Date: 20120820
  Receipt Date: 20121012
  Transmission Date: 20130627
  Serious: Yes (Other)
  Sender: FDA-Public Use
  Company Number: JP-ASTELLAS-2012US006988

PATIENT
  Age: 65 Year
  Sex: Male

DRUGS (10)
  1. ERLOTINIB TABLET [Suspect]
     Indication: ADENOCARCINOMA PANCREAS
     Dosage: 100 mg, UID/QD
     Route: 048
     Dates: start: 20120605, end: 20120803
  2. GEMCITABINE HYDROCHLORIDE [Suspect]
     Indication: ADENOCARCINOMA PANCREAS
     Dosage: 1000 mg/m2, UID/QD
     Route: 041
     Dates: start: 20120612, end: 20120612
  3. GEMCITABINE HYDROCHLORIDE [Suspect]
     Dosage: 1000 mg/m2, UID/QD
     Route: 041
     Dates: start: 20120619, end: 20120619
  4. GEMCITABINE HYDROCHLORIDE [Suspect]
     Dosage: 1000 mg/m2, UID/QD
     Route: 041
     Dates: start: 20120626, end: 20120626
  5. GEMCITABINE HYDROCHLORIDE [Suspect]
     Dosage: 1000 mg/m2, UID/QD
     Route: 041
     Dates: start: 20120710, end: 20120710
  6. GEMCITABINE HYDROCHLORIDE [Suspect]
     Dosage: 1000 mg/m2, UID/QD
     Route: 041
     Dates: start: 20120717, end: 20120717
  7. GEMCITABINE HYDROCHLORIDE [Suspect]
     Dosage: 1000 mg/m2, UID/QD
     Route: 041
     Dates: start: 20120724, end: 20120724
  8. GEMCITABINE HYDROCHLORIDE [Suspect]
     Dosage: 1000 mg/m2, UID/QD
     Route: 041
     Dates: start: 20120807, end: 20120807
  9. FASTIC [Concomitant]
     Indication: PRODUCT USED FOR UNKNOWN INDICATION
     Dosage: 270 mg, UID/QD
     Route: 048
  10. LANTUS [Concomitant]
     Indication: PRODUCT USED FOR UNKNOWN INDICATION
     Dosage: 15 IU, UID/QD
     Route: 058

REACTIONS (2)
  - Interstitial lung disease [Recovering/Resolving]
  - Dermatitis acneiform [Recovered/Resolved]
